FAERS Safety Report 21509440 (Version 2)
Quarter: 2023Q1

REPORT INFORMATION
  Report Type: Report from Study
  Country: US (occurrence: US)
  Receive Date: 20221026
  Receipt Date: 20230118
  Transmission Date: 20230418
  Serious: No
  Sender: FDA-Public Use
  Company Number: US-MIRM-000536

PATIENT
  Sex: Male

DRUGS (1)
  1. LIVMARLI [Suspect]
     Active Substance: MARALIXIBAT CHLORIDE
     Indication: Alagille syndrome
     Route: 048
     Dates: start: 202106

REACTIONS (1)
  - Xanthoma [Not Recovered/Not Resolved]

NARRATIVE: CASE EVENT DATE: 20220101
